FAERS Safety Report 12335096 (Version 1)
Quarter: 2016Q2

REPORT INFORMATION
  Report Type: Other
  Country: DE (occurrence: DE)
  Receive Date: 20160504
  Receipt Date: 20160504
  Transmission Date: 20160815
  Serious: Yes (Hospitalization)
  Sender: FDA-Public Use
  Company Number: DE-MYLANLABS-2016M1017588

PATIENT

DRUGS (10)
  1. PANTOPRAZOL [Concomitant]
     Active Substance: PANTOPRAZOLE SODIUM
     Dosage: 1 DF, QD (DAILY DOSE: 1 DF DOSAGE FORM EVERY DAY)
  2. ATORVASTATINE                      /01326101/ [Concomitant]
     Active Substance: ATORVASTATIN
     Dosage: 1 DF, QD (DAILY DOSE: 1 DF DOSAGE FORM EVERY DAY)
  3. TOREM                              /01036501/ [Concomitant]
     Active Substance: TORSEMIDE
     Dosage: 1 DF, BID (DAILY DOSE: 1 DF DOSAGE FORM EVERY DAY)
  4. ALLOPURINOL. [Concomitant]
     Active Substance: ALLOPURINOL
     Dosage: DAILY DOSE: 1 DF DOSAGE FORM EVERY DAY
  5. MAGNESIUM [Concomitant]
     Active Substance: MAGNESIUM
     Dosage: 1 DF, TID (DAILY DOSE: 1 DF DOSAGE FORM EVERY DAY)
  6. ACETYLSALICYLIC ACID [Concomitant]
     Active Substance: ASPIRIN
     Dosage: 1 DF, QD (DAILY DOSE: 1 DF DOSAGE FORM EVERY DAY)
  7. AMIODARONE [Suspect]
     Active Substance: AMIODARONE
     Dosage: 1 DF, TID (DAILY DOSE: 3 DF DOSAGE FORM EVERY DAY)
  8. SPIRONOLACTON [Concomitant]
     Active Substance: SPIRONOLACTONE
     Dosage: 1 DF, QD (DAILY DOSE: 1 DF DOSAGE FORM EVERY DAY)
  9. METAMIZOLE SODIUM [Concomitant]
     Active Substance: METAMIZOLE SODIUM
     Dosage: 1 DF, QID (DAILY DOSE: 1 DF DOSAGE FORM EVERY DAY)
  10. ZOPICLON [Concomitant]
     Active Substance: ZOPICLONE
     Dosage: 1 DF, QD (DAILY DOSE: 1 DF DOSAGE FORM EVERY DAY)

REACTIONS (2)
  - Infection [Recovering/Resolving]
  - Liver disorder [Recovering/Resolving]

NARRATIVE: CASE EVENT DATE: 20160222
